FAERS Safety Report 4289367-5 (Version None)
Quarter: 2004Q1

REPORT INFORMATION
  Report Type: 
  Country: None (occurrence: None)
  Receive Date: 20040203
  Receipt Date: 20030630
  Transmission Date: 20041129
  Serious: Yes (Hospitalization)
  Sender: FDA-Public Use
  Company Number: 200319897BWH

PATIENT
  Age: 92 Year
  Sex: Male

DRUGS (16)
  1. AVELOX [Suspect]
     Dosage: 400 MG, TOTAL DAILY, ORAL
     Route: 048
     Dates: start: 20030620
  2. AMBIEN [Suspect]
     Indication: INSOMNIA
     Dosage: 5 MG, TOTAL DAILY, ORAL
     Route: 048
     Dates: start: 20030617, end: 20030620
  3. FLUOCINONIDE [Concomitant]
  4. NASONEX [Concomitant]
  5. MYCOLOG [Concomitant]
  6. COZAAR [Concomitant]
  7. DYNACIRIC [Concomitant]
  8. FLOMAX [Concomitant]
  9. FOLIC ACID [Concomitant]
  10. FUROSEMIDE [Concomitant]
  11. HYDROXYZINE [Concomitant]
  12. LIPITOR [Concomitant]
  13. POTASSIUM [Concomitant]
  14. PROSCAR [Concomitant]
  15. TYLENOL PM [Concomitant]
  16. VIOXX [Concomitant]

REACTIONS (4)
  - ANAPHYLACTIC REACTION [None]
  - DYSPNOEA [None]
  - HOARSENESS [None]
  - SWOLLEN TONGUE [None]
